FAERS Safety Report 4532860-8 (Version None)
Quarter: 2004Q4

REPORT INFORMATION
  Report Type: 
  Country: None (occurrence: None)
  Receive Date: 20041220
  Receipt Date: 20041220
  Transmission Date: 20050328
  Serious: No
  Sender: FDA-Public Use
  Company Number: None

PATIENT
  Age: 60 Year
  Sex: Male

DRUGS (2)
  1. BEXTRA [Suspect]
     Indication: MYALGIA
     Dosage: ONE   DAILY  ORAL
     Route: 048
     Dates: start: 20020710, end: 20040910
  2. BEXTRA [Suspect]
     Indication: PAIN IN EXTREMITY
     Dosage: ONE   DAILY  ORAL
     Route: 048
     Dates: start: 20020710, end: 20040910

REACTIONS (2)
  - ANGINA PECTORIS [None]
  - CORONARY ARTERY OCCLUSION [None]
